FAERS Safety Report 5091394-5 (Version None)
Quarter: 2006Q3

REPORT INFORMATION
  Report Type: 
  Country: None (occurrence: None)
  Receive Date: 20060829
  Receipt Date: 20060726
  Transmission Date: 20061208
  Serious: Yes (Other)
  Sender: FDA-Public Use
  Company Number: DE-AVENTIS-200612209DE

PATIENT
  Age: 87 Year
  Sex: Female
  Weight: 73 kg

DRUGS (6)
  1. LANTUS [Suspect]
     Indication: DIABETES MELLITUS
     Dosage: DOSE: 26-36
     Route: 058
     Dates: start: 20040120, end: 20040817
  2. EZETROL                                 /GFR/ [Suspect]
     Indication: HYPERCHOLESTEROLAEMIA
     Route: 048
     Dates: start: 20020101, end: 20060101
  3. OVESTIN [Concomitant]
     Indication: URINARY TRACT INFECTION
     Route: 048
     Dates: start: 19950101, end: 20060101
  4. DELIX [Concomitant]
     Indication: HYPERTENSION
     Route: 048
     Dates: start: 20020101, end: 20060101
  5. MEVINACOR [Concomitant]
     Indication: HYPERCHOLESTEROLAEMIA
     Route: 048
     Dates: start: 20020101, end: 20060101
  6. APROVEL [Concomitant]
     Indication: HYPERTENSION
     Route: 048
     Dates: start: 20020101, end: 20060101

REACTIONS (2)
  - LYMPHOMA [None]
  - NON-HODGKIN'S LYMPHOMA [None]
